FAERS Safety Report 13179469 (Version 2)
Quarter: 2017Q1

REPORT INFORMATION
  Report Type: Spontaneous
  Country: JP (occurrence: JP)
  Receive Date: 20170202
  Receipt Date: 20170216
  Transmission Date: 20170428
  Serious: Yes (Life-Threatening, Hospitalization, Disabling, Other)
  Sender: FDA-Public Use
  Company Number: JP-GLAXOSMITHKLINE-JP2017JPN006245

PATIENT
  Age: 96 Year
  Sex: Male
  Weight: 38 kg

DRUGS (5)
  1. ACICLOVIR [Concomitant]
     Active Substance: ACYCLOVIR
     Dosage: UNK
  2. LANSOPRAZOLE-OD [Concomitant]
     Active Substance: LANSOPRAZOLE
     Dosage: 15 MG, QD
  3. TULOBUTEROL HYDROCHLORIDE [Concomitant]
     Active Substance: TULOBUTEROL HYDROCHLORIDE
     Dosage: 2 DF, 1D
  4. VALTREX [Suspect]
     Active Substance: VALACYCLOVIR HYDROCHLORIDE
     Indication: HERPES ZOSTER
     Dosage: 1000 MG, TID
     Route: 048
     Dates: start: 20170112, end: 20170115
  5. AMLODIN [Suspect]
     Active Substance: AMLODIPINE BESYLATE
     Indication: HYPERTENSION
     Dosage: UNK
     Route: 048

REACTIONS (13)
  - Altered state of consciousness [Recovered/Resolved]
  - Disuse syndrome [Unknown]
  - Anuria [Recovered/Resolved]
  - Hypertension [Unknown]
  - Overdose [Unknown]
  - Pneumonia aspiration [Recovering/Resolving]
  - Depressed level of consciousness [Recovered/Resolved]
  - Renal impairment [Recovered/Resolved]
  - Dysphagia [Not Recovered/Not Resolved]
  - Acute kidney injury [Recovered/Resolved]
  - Drug-induced liver injury [Recovering/Resolving]
  - Azotaemia [Recovered/Resolved]
  - Feeding disorder [Unknown]

NARRATIVE: CASE EVENT DATE: 20170114
